FAERS Safety Report 16106247 (Version 1)
Quarter: 2019Q2

REPORT INFORMATION
  Report Type: Spontaneous
  Country: US (occurrence: US)
  Receive Date: 20190321
  Receipt Date: 20190321
  Transmission Date: 20190711
  Serious: Yes (Disabling)
  Sender: FDA-Public Use
  Company Number: None

PATIENT
  Age: 65 Year
  Sex: Male
  Weight: 76.5 kg

DRUGS (1)
  1. LANSOPRAZOLE 30MG CAP ZYDU NDC: 6832-0544-06 [Suspect]
     Active Substance: LANSOPRAZOLE
     Indication: DYSPEPSIA
     Dosage: ?          QUANTITY:30 CAPSULE(S);?
     Route: 048
     Dates: start: 20190306, end: 20190314

REACTIONS (4)
  - Rash generalised [None]
  - Chills [None]
  - Rebound acid hypersecretion [None]
  - Pyrexia [None]

NARRATIVE: CASE EVENT DATE: 20190314
